FAERS Safety Report 5793249-7 (Version None)
Quarter: 2008Q2

REPORT INFORMATION
  Report Type: 
  Country: None (occurrence: None)
  Receive Date: 20080627
  Receipt Date: 20080625
  Transmission Date: 20081010
  Serious: Yes (Hospitalization)
  Sender: FDA-Public Use
  Company Number: US-ASTRAZENECA-2008AC01632

PATIENT
  Age: 20 Year
  Sex: Male
  Weight: 75 kg

DRUGS (6)
  1. PROPOFOL [Suspect]
     Indication: SEDATION
     Route: 042
  2. LIDOCAINE AND EPINEPHRINE [Suspect]
     Dosage: 1:100000 EPINEPHRINE
     Route: 004
  3. FENTANYL [Suspect]
     Indication: SEDATION
     Route: 042
  4. CANNABIS [Suspect]
  5. OXYGEN [Concomitant]
     Route: 045
  6. DEXTROSE [Concomitant]
     Route: 042

REACTIONS (3)
  - CONVERSION DISORDER [None]
  - MYOCLONUS [None]
  - PSYCHOTIC DISORDER [None]
